FAERS Safety Report 16234197 (Version 1)
Quarter: 2019Q2

REPORT INFORMATION
  Report Type: Spontaneous
  Country: US (occurrence: US)
  Receive Date: 20190424
  Receipt Date: 20190424
  Transmission Date: 20190711
  Serious: No
  Sender: FDA-Public Use
  Company Number: US-ARBOR PHARMACEUTICALS, LLC-US-2019ARB000306

PATIENT
  Sex: Female

DRUGS (1)
  1. TRIPTODUR [Suspect]
     Active Substance: TRIPTORELIN
     Indication: UNEVALUABLE EVENT
     Dosage: UNK, SINGLE
     Route: 030
     Dates: start: 20181009, end: 20191009

REACTIONS (3)
  - Product physical issue [Unknown]
  - Puberty [Unknown]
  - Off label use [Unknown]
